APPROVED DRUG PRODUCT: SELENIOUS ACID
Active Ingredient: SELENIOUS ACID
Strength: EQ 12MCG SELENIUM/2ML (EQ 6MCG SELENIUM/ML)
Dosage Form/Route: SOLUTION;INTRAVENOUS
Application: A218661 | Product #001
Applicant: CIPLA LTD
Approved: Jul 21, 2025 | RLD: No | RS: No | Type: DISCN